FAERS Safety Report 15254657 (Version 1)
Quarter: 2018Q3

REPORT INFORMATION
  Report Type: Spontaneous
  Country: AU (occurrence: AU)
  Receive Date: 20180808
  Receipt Date: 20180808
  Transmission Date: 20181010
  Serious: Yes (Other)
  Sender: FDA-Public Use
  Company Number: AU-IPSEN BIOPHARMACEUTICALS, INC.-2018-11349

PATIENT
  Age: 63 Year
  Sex: Female
  Weight: 70 kg

DRUGS (9)
  1. ENDEP [Concomitant]
     Active Substance: AMITRIPTYLINE HYDROCHLORIDE
     Indication: NEUROPATHY PERIPHERAL
  2. LIVIAL [Concomitant]
     Active Substance: TIBOLONE
  3. NEXIUM [Concomitant]
     Active Substance: ESOMEPRAZOLE MAGNESIUM
  4. DYSPORT [Suspect]
     Active Substance: ABOBOTULINUMTOXINA
     Indication: SKIN WRINKLING
  5. GABAPENTIN. [Concomitant]
     Active Substance: GABAPENTIN
  6. DYSPORT [Suspect]
     Active Substance: ABOBOTULINUMTOXINA
     Indication: SKIN WRINKLING
  7. DYSPORT [Suspect]
     Active Substance: ABOBOTULINUMTOXINA
     Indication: SKIN WRINKLING
     Dosage: 102 IU
     Route: 065
     Dates: start: 20180727, end: 20180727
  8. DYSPORT [Suspect]
     Active Substance: ABOBOTULINUMTOXINA
     Indication: OFF LABEL USE
  9. LYRICA [Concomitant]
     Active Substance: PREGABALIN

REACTIONS (2)
  - Facial paralysis [Unknown]
  - Off label use [Unknown]

NARRATIVE: CASE EVENT DATE: 20180730
